FAERS Safety Report 9562582 (Version 3)
Quarter: 2014Q1

REPORT INFORMATION
  Report Type: Spontaneous
  Country: US (occurrence: US)
  Receive Date: 20130927
  Receipt Date: 20140324
  Transmission Date: 20141002
  Serious: Yes (Hospitalization, Other)
  Sender: FDA-Public Use
  Company Number: US-ABBVIE-13P-163-1149798-00

PATIENT
  Age: 55 Year
  Sex: Female
  Weight: 65.83 kg

DRUGS (14)
  1. CREON [Suspect]
     Indication: PANCREATITIS
     Dosage: WITH EACH MEAL
     Route: 048
     Dates: start: 20120801, end: 20130923
  2. AMOXICILLIN [Suspect]
     Indication: URINARY TRACT INFECTION
     Dates: start: 20130917, end: 20130930
  3. MECLIZINE [Concomitant]
     Indication: PRODUCT USED FOR UNKNOWN INDICATION
  4. PREMARIN [Concomitant]
     Indication: OESTROGEN REPLACEMENT THERAPY
  5. NORCO [Concomitant]
     Indication: PRODUCT USED FOR UNKNOWN INDICATION
  6. OXYCONTIN [Concomitant]
     Indication: PRODUCT USED FOR UNKNOWN INDICATION
  7. HYDROXYZINE [Concomitant]
     Indication: BLADDER DISORDER
  8. LEVOTHYROXINE [Concomitant]
     Indication: HYPOTHYROIDISM
  9. LIDODERM [Concomitant]
     Indication: PAIN
     Dosage: PATCH
  10. XANAX [Concomitant]
     Indication: PRODUCT USED FOR UNKNOWN INDICATION
  11. SOMA [Concomitant]
     Indication: MUSCLE RELAXANT THERAPY
  12. AMBIEN [Concomitant]
     Indication: INSOMNIA
  13. PROTONIX [Concomitant]
     Indication: ULCER
  14. BUTALBITAL [Concomitant]
     Indication: MIGRAINE

REACTIONS (15)
  - Blood potassium decreased [Recovered/Resolved]
  - Irritable bowel syndrome [Recovered/Resolved]
  - Vomiting [Recovered/Resolved]
  - Diarrhoea [Recovered/Resolved]
  - Abdominal pain [Recovering/Resolving]
  - Vomiting [Recovered/Resolved]
  - Abdominal distension [Not Recovered/Not Resolved]
  - Abdominal pain [Not Recovered/Not Resolved]
  - Nausea [Not Recovered/Not Resolved]
  - Abdominal distension [Not Recovered/Not Resolved]
  - Weight increased [Not Recovered/Not Resolved]
  - Urinary tract infection [Not Recovered/Not Resolved]
  - Cystocele [Not Recovered/Not Resolved]
  - Bladder spasm [Not Recovered/Not Resolved]
  - Diarrhoea [Recovering/Resolving]
